FAERS Safety Report 10200420 (Version 1)
Quarter: 2014Q2

REPORT INFORMATION
  Report Type: Spontaneous
  Country: IN (occurrence: IN)
  Receive Date: 20140528
  Receipt Date: 20140528
  Transmission Date: 20141212
  Serious: Yes (Other)
  Sender: FDA-Public Use
  Company Number: PHHY2014IN062204

PATIENT
  Age: 54 Year
  Sex: Female

DRUGS (2)
  1. CARBOPLATIN [Suspect]
     Indication: ADENOCARCINOMA
     Dosage: 450 MG, ONCE IN 3 WEEKS
  2. PACLITAXEL [Suspect]
     Indication: ADENOCARCINOMA
     Dosage: 260 MG/M2, UNK

REACTIONS (5)
  - Hydronephrosis [Recovered/Resolved]
  - Dysuria [Recovered/Resolved]
  - Ovarian cancer recurrent [Recovered/Resolved]
  - Lymphadenopathy [Recovered/Resolved]
  - Abdominal discomfort [Recovered/Resolved]
